FAERS Safety Report 12145828 (Version 1)
Quarter: 2016Q1

REPORT INFORMATION
  Report Type: Spontaneous
  Country: FR (occurrence: FR)
  Receive Date: 20160304
  Receipt Date: 20160304
  Transmission Date: 20160526
  Serious: Yes (Death)
  Sender: FDA-Public Use
  Company Number: FR-SA-2016SA041344

PATIENT
  Age: 68 Year
  Sex: Male

DRUGS (13)
  1. TIORFAN [Concomitant]
     Active Substance: RACECADOTRIL
  2. AMLODIPINE [Concomitant]
     Active Substance: AMLODIPINE BESYLATE
  3. HEPARIN [Concomitant]
     Active Substance: HEPARIN SODIUM
  4. ZOPHREN [Concomitant]
     Active Substance: ONDANSETRON
  5. EVOLTRA [Suspect]
     Active Substance: CLOFARABINE
     Indication: ACUTE MYELOID LEUKAEMIA
     Route: 041
     Dates: start: 20151217, end: 20151220
  6. ZELITREX [Concomitant]
     Active Substance: VALACYCLOVIR HYDROCHLORIDE
  7. INEXIUM [Concomitant]
     Active Substance: ESOMEPRAZOLE
  8. ATARAX [Concomitant]
     Active Substance: HYDROXYZINE\HYDROXYZINE HYDROCHLORIDE
  9. PLITICAN [Concomitant]
     Active Substance: ALIZAPRIDE HYDROCHLORIDE
  10. CYTARABINE. [Suspect]
     Active Substance: CYTARABINE
     Indication: ACUTE MYELOID LEUKAEMIA
     Route: 065
     Dates: start: 20151217, end: 20151220
  11. DELURSAN [Concomitant]
     Active Substance: URSODIOL
  12. ZYLORIC [Concomitant]
     Active Substance: ALLOPURINOL
  13. STILNOX [Concomitant]
     Active Substance: ZOLPIDEM TARTRATE

REACTIONS (7)
  - Product use issue [Unknown]
  - Multiple organ dysfunction syndrome [Fatal]
  - Erythema [Fatal]
  - Acute kidney injury [Fatal]
  - Capillary leak syndrome [Fatal]
  - Hepatocellular injury [Fatal]
  - Drug administered to patient of inappropriate age [Unknown]

NARRATIVE: CASE EVENT DATE: 20151217
